FAERS Safety Report 7506410-8 (Version None)
Quarter: 2011Q2

REPORT INFORMATION
  Report Type: 
  Country: None (occurrence: None)
  Receive Date: 20110526
  Receipt Date: 20110518
  Transmission Date: 20111010
  Serious: Yes (Other)
  Sender: FDA-Public Use
  Company Number: US-SANOFI-AVENTIS-2011SA032586

PATIENT
  Sex: Female

DRUGS (1)
  1. LANTUS [Suspect]
     Route: 058
     Dates: start: 20050101

REACTIONS (4)
  - MALAISE [None]
  - BLOOD GLUCOSE FLUCTUATION [None]
  - BACK PAIN [None]
  - ROAD TRAFFIC ACCIDENT [None]
